FAERS Safety Report 19235804 (Version 1)
Quarter: 2021Q2

REPORT INFORMATION
  Report Type: Spontaneous
  Country: US (occurrence: US)
  Receive Date: 20210510
  Receipt Date: 20210510
  Transmission Date: 20210717
  Serious: Yes (Hospitalization, Other)
  Sender: FDA-Public Use
  Company Number: US-VISTAPHARM, INC.-VER202104-001176

PATIENT
  Age: 48 Year
  Sex: Female

DRUGS (1)
  1. METHADONE [Suspect]
     Active Substance: METHADONE HYDROCHLORIDE
     Indication: DRUG WITHDRAWAL MAINTENANCE THERAPY
     Dosage: 30 MG

REACTIONS (7)
  - Overdose [Unknown]
  - Torsade de pointes [Recovering/Resolving]
  - Accidental overdose [Unknown]
  - Respiratory failure [Recovering/Resolving]
  - Toxicity to various agents [Unknown]
  - Stress cardiomyopathy [Recovering/Resolving]
  - Bradycardia [Recovering/Resolving]
